FAERS Safety Report 5364305-2 (Version None)
Quarter: 2007Q2

REPORT INFORMATION
  Report Type: 
  Country: None (occurrence: None)
  Receive Date: 20070618
  Receipt Date: 20070531
  Transmission Date: 20071010
  Serious: Yes (Life-Threatening)
  Sender: FDA-Public Use
  Company Number: 16752

PATIENT
  Age: 60 Year
  Sex: Female

DRUGS (3)
  1. PACLITAXEL [Suspect]
     Indication: UTERINE CANCER
     Dosage: 322 MG IV
     Route: 042
     Dates: start: 20070509, end: 20070509
  2. CRAMPITON [Concomitant]
  3. METOPRAM [Concomitant]

REACTIONS (1)
  - ANAPHYLACTIC REACTION [None]
